FAERS Safety Report 21072939 (Version 1)
Quarter: 2022Q3

REPORT INFORMATION
  Report Type: Spontaneous
  Country: US (occurrence: US)
  Receive Date: 20220712
  Receipt Date: 20220712
  Transmission Date: 20221027
  Serious: No
  Sender: FDA-Public Use
  Company Number: US-SANOFI-01173534

PATIENT
  Sex: Female

DRUGS (2)
  1. DUPIXENT [Suspect]
     Active Substance: DUPILUMAB
     Indication: Chronic rhinosinusitis with nasal polyps
  2. MOMETASONE [Concomitant]
     Active Substance: MOMETASONE
     Dosage: NASAL SPRAY

REACTIONS (4)
  - Stomatitis [Unknown]
  - Pain [Unknown]
  - Papilloma [Unknown]
  - Product use issue [Unknown]
